FAERS Safety Report 24673395 (Version 2)
Quarter: 2025Q2

REPORT INFORMATION
  Report Type: Spontaneous
  Country: IT (occurrence: IT)
  Receive Date: 20241128
  Receipt Date: 20250416
  Transmission Date: 20250717
  Serious: Yes (Other)
  Sender: TEVA
  Company Number: IT-TEVA-VS-3268494

PATIENT
  Age: 71 Year
  Sex: Male

DRUGS (9)
  1. PANTOPRAZOLE [Interacting]
     Active Substance: PANTOPRAZOLE
     Indication: Product used for unknown indication
     Route: 065
  2. ROSUVASTATIN [Interacting]
     Active Substance: ROSUVASTATIN
     Indication: Dyslipidaemia
     Route: 065
  3. RAMIPRIL [Interacting]
     Active Substance: RAMIPRIL
     Indication: Hypertension
     Route: 065
  4. EZETIMIBE [Concomitant]
     Active Substance: EZETIMIBE
     Indication: Dyslipidaemia
     Route: 065
  5. IMATINIB [Suspect]
     Active Substance: IMATINIB
     Indication: Gastrointestinal stromal tumour
     Route: 065
  6. CLOPIDOGREL [Interacting]
     Active Substance: CLOPIDOGREL BISULFATE
     Indication: Antiplatelet therapy
     Route: 065
  7. ALLOPURINOL [Interacting]
     Active Substance: ALLOPURINOL
     Indication: Hyperuricaemia
     Route: 065
  8. ISOSORBIDE DINITRATE [Interacting]
     Active Substance: ISOSORBIDE DINITRATE
     Indication: Myocardial ischaemia
     Route: 065
  9. ASPIRIN [Interacting]
     Active Substance: ASPIRIN
     Indication: Antiplatelet therapy
     Route: 065

REACTIONS (10)
  - Toxicity to various agents [Unknown]
  - Rhabdomyolysis [Unknown]
  - Blood creatine phosphokinase increased [Unknown]
  - Drug level increased [Recovering/Resolving]
  - Nephropathy toxic [Unknown]
  - Haemorrhage [Unknown]
  - Drug level decreased [Unknown]
  - Drug interaction [Unknown]
  - Drug hypersensitivity [Unknown]
  - Myalgia [Unknown]
